FAERS Safety Report 5126179-4 (Version None)
Quarter: 2006Q3

REPORT INFORMATION
  Report Type: 
  Country: None (occurrence: None)
  Receive Date: 20060823
  Receipt Date: 20060316
  Transmission Date: 20061208
  Serious: Yes (Other)
  Sender: FDA-Public Use
  Company Number: WAES 0603USA02795

PATIENT
  Age: 47 Year
  Sex: Male

DRUGS (2)
  1. PROSCAR [Suspect]
     Indication: BENIGN PROSTATIC HYPERPLASIA
     Dosage: 5 MG/PM/PO
     Route: 048
     Dates: start: 20060307, end: 20060316
  2. LISINOPRIL [Concomitant]

REACTIONS (1)
  - SWELLING FACE [None]
